FAERS Safety Report 14485571 (Version 1)
Quarter: 2018Q1

REPORT INFORMATION
  Report Type: Spontaneous
  Country: JP (occurrence: JP)
  Receive Date: 20180205
  Receipt Date: 20180205
  Transmission Date: 20180509
  Serious: Yes (Death)
  Sender: FDA-Public Use
  Company Number: JP-PFIZER INC-2018047790

PATIENT
  Age: 44 Year
  Sex: Male

DRUGS (11)
  1. AMPHOTERICIN B, LIPOSOME [Concomitant]
     Active Substance: AMPHOTERICIN B
     Indication: ANTIFUNGAL PROPHYLAXIS
  2. ARA-A [Concomitant]
     Indication: GENITAL HERPES SIMPLEX
     Dosage: UNK
     Dates: start: 201203
  3. SULFAMETHOXAZOLE W/TRIMETHOPRIM [Concomitant]
     Active Substance: SULFAMETHOXAZOLE\TRIMETHOPRIM
     Indication: ANTIFUNGAL PROPHYLAXIS
     Dosage: UNK (STARTED FROM DAY -7)
     Dates: start: 201203
  4. ACICLOVIR [Concomitant]
     Active Substance: ACYCLOVIR
     Indication: ANTIVIRAL PROPHYLAXIS
     Dosage: 1500 MG, 1X/DAY (INCREASED TO 1500 MG/DAY ON DAY +1)
  5. FLUDARABINE [Concomitant]
     Active Substance: FLUDARABINE PHOSPHATE
     Dosage: UNK (CONDITIONING REGIMEN, ADMINISTERED FROM DAY -6)
     Dates: start: 201203
  6. VORICONAZOLE. [Suspect]
     Active Substance: VORICONAZOLE
     Indication: ANTIFUNGAL PROPHYLAXIS
  7. AMPHOTERICIN B, LIPOSOME [Concomitant]
     Active Substance: AMPHOTERICIN B
     Indication: ANTIFUNGAL PROPHYLAXIS
     Dosage: 5 MG/KG, UNK (ON DAY +4)
     Dates: start: 201203
  8. ACICLOVIR [Concomitant]
     Active Substance: ACYCLOVIR
     Indication: ANTIVIRAL PROPHYLAXIS
     Dosage: 1000 MG, 1X/DAY (STARTED FROM DAY -7)
     Dates: start: 201203
  9. VORICONAZOLE. [Suspect]
     Active Substance: VORICONAZOLE
     Indication: ANTIFUNGAL PROPHYLAXIS
     Dosage: 400 MG, 1X/DAY (STARTED FROM DAY -7)
     Route: 042
     Dates: start: 201203
  10. SULFAMETHOXAZOLE W/TRIMETHOPRIM [Concomitant]
     Active Substance: SULFAMETHOXAZOLE\TRIMETHOPRIM
     Indication: ANTIFUNGAL PROPHYLAXIS
  11. MEROPENEM. [Concomitant]
     Active Substance: MEROPENEM
     Indication: ANTIFUNGAL PROPHYLAXIS
     Dosage: UNK (STARTED FROM DAY -7)
     Dates: start: 201203

REACTIONS (2)
  - Drug resistance [Fatal]
  - Drug ineffective [Fatal]

NARRATIVE: CASE EVENT DATE: 201203
